FAERS Safety Report 17850133 (Version 1)
Quarter: 2020Q2

REPORT INFORMATION
  Report Type: Spontaneous
  Country: IT (occurrence: IT)
  Receive Date: 20200602
  Receipt Date: 20200602
  Transmission Date: 20200714
  Serious: Yes (Other)
  Sender: FDA-Public Use
  Company Number: IT-ROCHE-2610353

PATIENT
  Age: 74 Year
  Sex: Female

DRUGS (1)
  1. VISMODEGIB. [Suspect]
     Active Substance: VISMODEGIB
     Indication: BASAL CELL CARCINOMA
     Route: 048
     Dates: start: 201708

REACTIONS (4)
  - Osteoporosis [Unknown]
  - Alopecia [Unknown]
  - Toxicity to various agents [Unknown]
  - Fracture [Recovered/Resolved]
